FAERS Safety Report 19185073 (Version 1)
Quarter: 2021Q2

REPORT INFORMATION
  Report Type: Spontaneous
  Country: CA (occurrence: CA)
  Receive Date: 20210427
  Receipt Date: 20210427
  Transmission Date: 20210717
  Serious: Yes (Life-Threatening, Hospitalization, Other)
  Sender: FDA-Public Use
  Company Number: ALC2021CA002753

PATIENT
  Age: 32 Year
  Sex: Female

DRUGS (4)
  1. FENTANYL. [Suspect]
     Active Substance: FENTANYL
     Indication: SPINAL ANAESTHESIA
     Dosage: 20 MICROGRAM
     Route: 065
  2. PHENYLEPHRINE HCL 2.5 % [Suspect]
     Active Substance: PHENYLEPHRINE HYDROCHLORIDE
     Indication: PRODUCT USED FOR UNKNOWN INDICATION
     Dosage: 50 MICROGRAM 1 EVERY 1 MINUTES
     Route: 065
  3. BUPIVACAINE. [Suspect]
     Active Substance: BUPIVACAINE
     Indication: SPINAL ANAESTHESIA
     Dosage: 12 MG
     Route: 065
  4. MORPHINE SULFATE. [Suspect]
     Active Substance: MORPHINE SULFATE
     Indication: SPINAL ANAESTHESIA
     Dosage: 150 MICROGRAM
     Route: 065

REACTIONS (9)
  - Hypotension [Not Recovered/Not Resolved]
  - Paralysis [Not Recovered/Not Resolved]
  - Urinary retention [Not Recovered/Not Resolved]
  - Neuralgia [Not Recovered/Not Resolved]
  - Rhythm idioventricular [Not Recovered/Not Resolved]
  - Bradycardia [Not Recovered/Not Resolved]
  - Maternal exposure during pregnancy [Not Recovered/Not Resolved]
  - Spinal cord injury [Not Recovered/Not Resolved]
  - Anterior spinal artery syndrome [Not Recovered/Not Resolved]
